FAERS Safety Report 20616724 (Version 19)
Quarter: 2023Q2

REPORT INFORMATION
  Report Type: Report from Study
  Country: US (occurrence: US)
  Receive Date: 20220321
  Receipt Date: 20230612
  Transmission Date: 20230721
  Serious: Yes (Life-Threatening, Other)
  Sender: FDA-Public Use
  Company Number: US-NOVARTISPH-NVSC2022US062190

PATIENT
  Age: 57 Year
  Sex: Female
  Weight: 84.8 kg

DRUGS (12)
  1. OFATUMUMAB [Suspect]
     Active Substance: OFATUMUMAB
     Indication: Multiple sclerosis relapse
     Dosage: 20 MG, Q4W
     Route: 058
     Dates: start: 20190620, end: 20220222
  2. PLACEBO [Suspect]
     Active Substance: UNSPECIFIED INGREDIENT
     Indication: Multiple sclerosis relapse
     Dosage: 20 MG, PFS
     Route: 058
     Dates: start: 20190122, end: 20190514
  3. VITAMIN D [Concomitant]
     Active Substance: VITAMIN D NOS
     Indication: General physical condition
     Dosage: UNK
     Route: 065
     Dates: start: 20180912
  4. ADVIL [Concomitant]
     Active Substance: IBUPROFEN
     Indication: Bone disorder
     Dosage: UNK
     Route: 065
     Dates: start: 20190103
  5. ADVIL [Concomitant]
     Active Substance: IBUPROFEN
     Indication: Bone pain
  6. BENADRYL [Concomitant]
     Active Substance: DIPHENHYDRAMINE HYDROCHLORIDE
     Indication: Urticaria
     Dosage: UNK
     Route: 065
     Dates: start: 2000
  7. BENADRYL [Concomitant]
     Active Substance: DIPHENHYDRAMINE HYDROCHLORIDE
     Indication: Seasonal allergy
  8. MELATONIN [Concomitant]
     Active Substance: MELATONIN
     Indication: General physical condition
     Dosage: UNK
     Route: 065
     Dates: start: 201809
  9. IBUPROFEN [Concomitant]
     Active Substance: IBUPROFEN
     Indication: Pain
     Dosage: UNK
     Route: 065
     Dates: start: 1996
  10. IBUPROFEN [Concomitant]
     Active Substance: IBUPROFEN
     Indication: Bone pain
  11. IBUPROFEN [Concomitant]
     Active Substance: IBUPROFEN
     Indication: Nasopharyngitis
  12. IBUPROFEN [Concomitant]
     Active Substance: IBUPROFEN
     Indication: Bone disorder

REACTIONS (1)
  - Rectal cancer metastatic [Not Recovered/Not Resolved]

NARRATIVE: CASE EVENT DATE: 20220223
